FAERS Safety Report 23744219 (Version 2)
Quarter: 2024Q3

REPORT INFORMATION
  Report Type: Report from Study
  Country: US (occurrence: US)
  Receive Date: 20240415
  Receipt Date: 20240913
  Transmission Date: 20241017
  Serious: Yes (Other)
  Sender: ABBVIE
  Company Number: US-ABBVIE-5719059

PATIENT
  Sex: Female

DRUGS (1)
  1. SKYRIZI [Suspect]
     Active Substance: RISANKIZUMAB-RZAA
     Indication: Psoriasis
     Route: 058
     Dates: start: 20221013

REACTIONS (7)
  - Hernia [Recovered/Resolved]
  - Diabetes mellitus [Recovering/Resolving]
  - Chest pain [Recovered/Resolved]
  - Malignant melanoma [Recovered/Resolved]
  - Rash [Recovering/Resolving]
  - Foot deformity [Recovering/Resolving]
  - Pain in extremity [Recovering/Resolving]
